FAERS Safety Report 7133366-2 (Version None)
Quarter: 2010Q4

REPORT INFORMATION
  Report Type: 
  Country: None (occurrence: None)
  Receive Date: 20101202
  Receipt Date: 20101126
  Transmission Date: 20110411
  Serious: Yes (Hospitalization, Other)
  Sender: FDA-Public Use
  Company Number: US-B.I. PHARMACEUTICALS,INC./RIDGEFIELD-2010-BP-13302BP

PATIENT
  Sex: Male

DRUGS (2)
  1. FLOMAX [Suspect]
     Indication: PROSTATOMEGALY
     Dosage: 0.4 MG
     Route: 048
     Dates: start: 20090101, end: 20100901
  2. BUPROPION [Concomitant]
     Indication: ATTENTION DEFICIT/HYPERACTIVITY DISORDER
     Route: 048
     Dates: start: 20101101

REACTIONS (9)
  - ATRIAL FIBRILLATION [None]
  - DEHYDRATION [None]
  - DIZZINESS [None]
  - DRUG INEFFECTIVE [None]
  - DYSPHAGIA [None]
  - DYSURIA [None]
  - FALL [None]
  - JAW FRACTURE [None]
  - NAUSEA [None]
